FAERS Safety Report 5730608-2 (Version None)
Quarter: 2008Q2

REPORT INFORMATION
  Report Type: 
  Country: None (occurrence: None)
  Receive Date: 20080507
  Receipt Date: 20080327
  Transmission Date: 20081010
  Serious: Yes (Other)
  Sender: FDA-Public Use
  Company Number: B0519108A

PATIENT
  Age: 10 Year
  Sex: Female
  Weight: 42 kg

DRUGS (1)
  1. MALARONE [Suspect]
     Indication: MALARIA PROPHYLAXIS
     Route: 048
     Dates: start: 20071201

REACTIONS (8)
  - AGGRESSION [None]
  - AGITATION [None]
  - AUTISM [None]
  - CONVERSION DISORDER [None]
  - FEAR [None]
  - IRRITABILITY [None]
  - MUTISM [None]
  - PRE-EXISTING DISEASE [None]
